FAERS Safety Report 13385737 (Version 2)
Quarter: 2018Q4

REPORT INFORMATION
  Report Type: Report from Study
  Country: CA (occurrence: CA)
  Receive Date: 20170330
  Receipt Date: 20181224
  Transmission Date: 20190204
  Serious: Yes (Other)
  Sender: FDA-Public Use
  Company Number: CA-ROCHE-1912478

PATIENT
  Age: 71 Year
  Sex: Male

DRUGS (10)
  1. MEZAVANT [Concomitant]
     Active Substance: MESALAMINE
  2. ACTONEL [Concomitant]
     Active Substance: RISEDRONATE SODIUM
  3. ACTEMRA [Suspect]
     Active Substance: TOCILIZUMAB
     Indication: RHEUMATOID ARTHRITIS
     Route: 058
     Dates: start: 20161104, end: 201703
  4. FLOMAX [Concomitant]
     Active Substance: TAMSULOSIN HYDROCHLORIDE
  5. SYNTHROID [Concomitant]
     Active Substance: LEVOTHYROXINE SODIUM
  6. DEXILANT [Concomitant]
     Active Substance: DEXLANSOPRAZOLE
  7. CESAMET [Concomitant]
     Active Substance: NABILONE
  8. METHOTREXATE. [Concomitant]
     Active Substance: METHOTREXATE
  9. ACETYLSALICYLIC ACID [Concomitant]
     Active Substance: ASPIRIN
  10. LYRICA [Concomitant]
     Active Substance: PREGABALIN

REACTIONS (12)
  - Poor quality sleep [Not Recovered/Not Resolved]
  - Polyarthritis [Not Recovered/Not Resolved]
  - Musculoskeletal stiffness [Not Recovered/Not Resolved]
  - Plantar fasciitis [Not Recovered/Not Resolved]
  - X-ray abnormal [Not Recovered/Not Resolved]
  - Pain [Unknown]
  - Pain in extremity [Not Recovered/Not Resolved]
  - Drug ineffective [Unknown]
  - Gait disturbance [Unknown]
  - Arthralgia [Not Recovered/Not Resolved]
  - Synovitis [Not Recovered/Not Resolved]
  - Swollen joint count [Unknown]

NARRATIVE: CASE EVENT DATE: 201703
